FAERS Safety Report 12795432 (Version 2)
Quarter: 2016Q4

REPORT INFORMATION
  Report Type: Spontaneous
  Country: JP (occurrence: JP)
  Receive Date: 20160929
  Receipt Date: 20161005
  Transmission Date: 20170207
  Serious: Yes (Other)
  Sender: FDA-Public Use
  Company Number: JP-ASTRAZENECA-2016SF02377

PATIENT
  Age: 78 Year
  Sex: Female

DRUGS (2)
  1. UNSPECIFIED [Concomitant]
     Active Substance: UNSPECIFIED INGREDIENT
  2. CRESTOR [Suspect]
     Active Substance: ROSUVASTATIN CALCIUM
     Indication: HYPERCHOLESTEROLAEMIA
     Dosage: DOSE UNKNOWN
     Route: 048

REACTIONS (1)
  - Erythema multiforme [Recovered/Resolved]
